FAERS Safety Report 7454738-2 (Version None)
Quarter: 2011Q2

REPORT INFORMATION
  Report Type: 
  Country: None (occurrence: None)
  Receive Date: 20110503
  Receipt Date: 20100329
  Transmission Date: 20111010
  Serious: Yes (Other)
  Sender: FDA-Public Use
  Company Number: US-PFIZER INC-2010022456

PATIENT
  Sex: Female
  Weight: 82.54 kg

DRUGS (5)
  1. NADOLOL [Concomitant]
     Dosage: 20 MG, 1X/DAY
     Dates: end: 20090601
  2. XANAX [Concomitant]
     Dosage: 0.5 G, 3X/DAY, AS NEEDED
  3. LUNESTA [Concomitant]
     Dosage: 3 MG, AS NEEDED
  4. DEPO-PROVERA [Suspect]
     Indication: CONTRACEPTION
     Dosage: 150 MG, EVERY 3 MONTHS
     Route: 030
     Dates: start: 20010601
  5. VYTORIN [Concomitant]
     Dosage: 10/40 DAILY

REACTIONS (7)
  - RASH [None]
  - PRURITUS [None]
  - URTICARIA [None]
  - SWELLING [None]
  - DYSPNOEA [None]
  - FEELING HOT [None]
  - TACHYCARDIA [None]
